FAERS Safety Report 7690472-1 (Version None)
Quarter: 2011Q3

REPORT INFORMATION
  Report Type: 
  Country: None (occurrence: None)
  Receive Date: 20110818
  Receipt Date: 20110812
  Transmission Date: 20111222
  Serious: Yes (Death, Life-Threatening, Disabling)
  Sender: FDA-Public Use
  Company Number: DE-PFIZER INC-2011186764

PATIENT
  Age: 27 Year
  Sex: Female
  Weight: 116 kg

DRUGS (9)
  1. LEVOTHYROXINE [Concomitant]
     Indication: PRIMARY HYPOTHYROIDISM
  2. DESMOPRESSIN ACETATE [Concomitant]
     Indication: BLOOD ANTIDIURETIC HORMONE DECREASED
     Dosage: 7 IU, 1X/DAY
     Dates: start: 19920701
  3. PROGYNOVA [Concomitant]
     Indication: BLOOD FOLLICLE STIMULATING HORMONE DECREASED
  4. LEVOTHYROXINE [Concomitant]
     Indication: BLOOD THYROID STIMULATING HORMONE DECREASED
     Dosage: 175 UG, 1X/DAY
     Dates: start: 19920701
  5. PROGYNOVA [Concomitant]
     Indication: HYPOGONADISM
  6. HYDROCORTISONE [Concomitant]
     Indication: BLOOD CORTICOTROPHIN DECREASED
     Dosage: 20 MG, 1X/DAY
     Dates: start: 19920701
  7. SOMATROPIN RDNA [Suspect]
     Indication: HYPOPITUITARISM
     Dosage: 0.7 MG, 1X/DAY
     Dates: start: 20040503
  8. PROGYNOVA [Concomitant]
     Indication: BLOOD LUTEINISING HORMONE DECREASED
     Dosage: 2 MG, 1X/DAY
     Route: 048
     Dates: start: 19980701
  9. MINISISTON [Concomitant]
     Indication: AMENORRHOEA
     Dosage: 1 DF, 1X/DAY
     Route: 048
     Dates: start: 20070207

REACTIONS (1)
  - DEATH [None]
